FAERS Safety Report 8507501-5 (Version None)
Quarter: 2012Q3

REPORT INFORMATION
  Report Type: 
  Country: None (occurrence: None)
  Receive Date: 20120713
  Receipt Date: 20120710
  Transmission Date: 20120928
  Serious: Yes (Other)
  Sender: FDA-Public Use
  Company Number: GR-AMGEN-GRCSP2012038095

PATIENT
  Age: 70 Year
  Sex: Female

DRUGS (2)
  1. ANTIPSYCHOTICS [Concomitant]
  2. PROLIA [Suspect]
     Indication: OSTEOPOROSIS
     Dosage: 60 MG, Q6MO
     Dates: start: 20120401, end: 20120401

REACTIONS (2)
  - OSTEONECROSIS OF JAW [None]
  - TOOTHACHE [None]
